FAERS Safety Report 4864269-1 (Version None)
Quarter: 2005Q4

REPORT INFORMATION
  Report Type: 
  Country: None (occurrence: None)
  Receive Date: 20051221
  Receipt Date: 20051221
  Transmission Date: 20060501
  Serious: Yes (Other)
  Sender: FDA-Public Use
  Company Number: None

PATIENT
  Sex: Male
  Weight: 100 kg

DRUGS (1)
  1. IPRATROPIUM HFA INHALER 18MCG/SPRAY (14GM) [Suspect]
     Indication: CHRONIC OBSTRUCTIVE PULMONARY DISEASE
     Dosage: 2 PUFFS  4 TIMES/DAY  ORAL INH
     Route: 055
     Dates: start: 20051202

REACTIONS (2)
  - DIZZINESS [None]
  - HYPERHIDROSIS [None]
